FAERS Safety Report 12678514 (Version 8)
Quarter: 2019Q4

REPORT INFORMATION
  Report Type: Report from Study
  Country: JP (occurrence: JP)
  Receive Date: 20160823
  Receipt Date: 20191226
  Transmission Date: 20200122
  Serious: Yes (Life-Threatening, Hospitalization)
  Sender: FDA-Public Use
  Company Number: PHJP2016JP023260

PATIENT
  Age: 72 Year
  Sex: Male
  Weight: 66 kg

DRUGS (32)
  1. TANATRIL [Concomitant]
     Active Substance: IMIDAPRIL
     Indication: HYPERTENSION
     Dosage: 10 MG, QD
     Route: 048
     Dates: start: 20160818, end: 20160827
  2. ISCOTIN [Concomitant]
     Active Substance: ISONIAZID
     Indication: PROPHYLAXIS
     Dosage: 300 MG, QD
     Route: 048
     Dates: start: 20160818, end: 20160824
  3. AMLODIN [Concomitant]
     Active Substance: AMLODIPINE BESYLATE
     Indication: HYPERTENSION
     Dosage: 10 MG, QD
     Route: 048
     Dates: start: 20160821, end: 20160827
  4. DOVOBET [Concomitant]
     Active Substance: BETAMETHASONE\CALCIPOTRIENE
     Indication: PSORIATIC ARTHROPATHY
     Dosage: APPROPRIATE DOSE
     Route: 061
  5. TANATRIL [Concomitant]
     Active Substance: IMIDAPRIL
     Dosage: 10 MG, UNK
     Route: 048
  6. ISCOTIN [Concomitant]
     Active Substance: ISONIAZID
     Dosage: 300 MG, QD
     Route: 048
     Dates: start: 20160928
  7. POVIDONE-IODINE. [Concomitant]
     Active Substance: POVIDONE-IODINE
     Indication: PRODUCT USED FOR UNKNOWN INDICATION
     Dosage: 10 ML, UNK
     Route: 065
     Dates: start: 20160817, end: 20160818
  8. NORMAL SALINE [Concomitant]
     Active Substance: SODIUM CHLORIDE
     Indication: PRODUCT USED FOR UNKNOWN INDICATION
     Dosage: 5 ML, UNK
     Route: 065
     Dates: start: 20160817, end: 20160818
  9. PYDOXAL [Concomitant]
     Active Substance: PYRIDOXAL
     Indication: PROPHYLAXIS
     Dosage: 30 MG, UNK
     Route: 048
     Dates: start: 20160621
  10. PYDOXAL [Concomitant]
     Active Substance: PYRIDOXAL
     Dosage: 10 MG, BID
     Route: 048
     Dates: start: 20160824, end: 20160824
  11. COSENTYX [Suspect]
     Active Substance: SECUKINUMAB
     Indication: PSORIATIC ARTHROPATHY
     Dosage: 300 MG, QW
     Route: 058
     Dates: start: 20160803
  12. COSENTYX [Suspect]
     Active Substance: SECUKINUMAB
     Dosage: 300 MG, QW
     Route: 058
     Dates: start: 20160810, end: 20160810
  13. COCARL [Concomitant]
     Active Substance: ACETAMINOPHEN
     Indication: PSORIATIC ARTHROPATHY
     Dosage: 600 MG, PRN
     Route: 048
     Dates: start: 20160705
  14. NORMAL SALINE [Concomitant]
     Active Substance: SODIUM CHLORIDE
     Dosage: 5 ML, UNK
     Route: 065
     Dates: start: 20160824, end: 20160824
  15. POVIDONE-IODINE. [Concomitant]
     Active Substance: POVIDONE-IODINE
     Dosage: 10 ML, UNK
     Route: 065
     Dates: start: 20160822, end: 20160822
  16. ALMETA [Concomitant]
     Active Substance: ALCLOMETASONE DIPROPIONATE
     Indication: PSORIATIC ARTHROPATHY
     Dosage: APPROPRIATE DOSE
     Route: 061
  17. NORMAL SALINE [Concomitant]
     Active Substance: SODIUM CHLORIDE
     Indication: PRODUCT USED FOR UNKNOWN INDICATION
     Dosage: 20 ML, UNK
     Route: 065
     Dates: start: 20160817, end: 20160818
  18. NORMAL SALINE [Concomitant]
     Active Substance: SODIUM CHLORIDE
     Dosage: 15 ML, UNK
     Route: 065
     Dates: start: 20160824, end: 20160824
  19. NEXIUM I.V. [Concomitant]
     Active Substance: ESOMEPRAZOLE SODIUM
     Indication: PROPHYLAXIS
     Dosage: 20 MG, QD
     Route: 048
  20. ISCOTIN [Concomitant]
     Active Substance: ISONIAZID
     Indication: MYCOBACTERIUM TUBERCULOSIS COMPLEX TEST POSITIVE
     Dosage: 300 MG, UNK
     Route: 048
     Dates: start: 20160706
  21. NORMAL SALINE [Concomitant]
     Active Substance: SODIUM CHLORIDE
     Dosage: 5 ML, UNK
     Route: 065
     Dates: start: 20160820, end: 20160822
  22. PYDOXAL [Concomitant]
     Active Substance: PYRIDOXAL
     Dosage: 10 MG, TID
     Route: 048
     Dates: start: 20160825, end: 20160825
  23. AMLODIN [Concomitant]
     Active Substance: AMLODIPINE BESYLATE
     Dosage: 10 MG, UNK
     Route: 048
  24. NORMAL SALINE [Concomitant]
     Active Substance: SODIUM CHLORIDE
     Dosage: 20 ML, UNK
     Route: 065
     Dates: start: 20160822, end: 20160822
  25. NORMAL SALINE [Concomitant]
     Active Substance: SODIUM CHLORIDE
     Dosage: 5 ML, UNK
     Route: 065
     Dates: start: 20160825, end: 20160826
  26. NORVASC [Concomitant]
     Active Substance: AMLODIPINE BESYLATE
     Indication: HYPERTENSION
     Dosage: 10 MG, QD
     Route: 048
     Dates: start: 20160818, end: 20160820
  27. MIDAZOLAM [Concomitant]
     Active Substance: MIDAZOLAM HYDROCHLORIDE
     Indication: PRODUCT USED FOR UNKNOWN INDICATION
     Dosage: 10 MG, UNK
     Route: 065
     Dates: start: 20160824, end: 20160824
  28. NORMAL SALINE [Concomitant]
     Active Substance: SODIUM CHLORIDE
     Indication: PRODUCT USED FOR UNKNOWN INDICATION
     Dosage: 100 ML, UNK
     Route: 065
     Dates: start: 20160824, end: 20160824
  29. NORMAL SALINE [Concomitant]
     Active Substance: SODIUM CHLORIDE
     Dosage: 15 ML, UNK
     Route: 065
     Dates: start: 20160819, end: 20160819
  30. PYDOXAL [Concomitant]
     Active Substance: PYRIDOXAL
     Dosage: 10 MG, TID
     Route: 048
     Dates: start: 20160818, end: 20160823
  31. PYDOXAL [Concomitant]
     Active Substance: PYRIDOXAL
     Dosage: 10 MG, BID
     Route: 048
     Dates: start: 20160826, end: 20160826
  32. COCARL [Concomitant]
     Active Substance: ACETAMINOPHEN
     Dosage: 400 MG, UNK
     Route: 048
     Dates: start: 20160824, end: 20160824

REACTIONS (7)
  - Productive cough [Unknown]
  - Lung infiltration [Unknown]
  - Insomnia [Unknown]
  - Pleural effusion [Unknown]
  - Pulmonary mass [Unknown]
  - Organising pneumonia [Recovered/Resolved]
  - Lymphadenopathy [Unknown]

NARRATIVE: CASE EVENT DATE: 20160817
